FAERS Safety Report 4915293-1 (Version None)
Quarter: 2006Q1

REPORT INFORMATION
  Report Type: 
  Country: None (occurrence: None)
  Receive Date: 20060217
  Receipt Date: 20060213
  Transmission Date: 20060701
  Serious: Yes (Life-Threatening, Hospitalization, Disabling, Other)
  Sender: FDA-Public Use
  Company Number: US-GLAXOSMITHKLINE-A0593478A

PATIENT
  Age: 60 Year
  Sex: Male

DRUGS (28)
  1. VALTREX [Suspect]
     Dosage: 1G TWICE PER DAY
     Route: 048
     Dates: start: 20060102, end: 20060106
  2. TACROLIMUS [Suspect]
     Dosage: 6.5MG PER DAY
     Route: 048
     Dates: start: 19990101
  3. ZOCOR [Concomitant]
  4. LOPID [Concomitant]
  5. LASIX [Concomitant]
  6. COLACE [Concomitant]
  7. POTASSIUM CHLORIDE [Concomitant]
  8. ALLOPURINOL [Concomitant]
  9. AVAPRO [Concomitant]
  10. ALDACTONE [Concomitant]
  11. FOSAMAX [Concomitant]
  12. DRISDOL [Concomitant]
  13. HUMULIN 70/30 [Concomitant]
  14. HUMULIN R [Concomitant]
  15. PERCOCET [Concomitant]
  16. CELLCEPT [Concomitant]
  17. NORVASC [Concomitant]
  18. HYTRIN [Concomitant]
  19. TOPROL [Concomitant]
  20. SYNTHROID [Concomitant]
  21. AMITRIPTYLINE HCL [Concomitant]
  22. ECOTRIN LOW STRENGTH TABLETS [Concomitant]
  23. CAPTOPRESS [Concomitant]
  24. ALLEGRA [Concomitant]
  25. ACIPHEX [Concomitant]
  26. PENTAM [Concomitant]
  27. RESTORIL [Concomitant]
  28. COLCHICINE [Concomitant]

REACTIONS (2)
  - DRUG INTERACTION [None]
  - RENAL FAILURE CHRONIC [None]
